FAERS Safety Report 8548373-2 (Version None)
Quarter: 2012Q3

REPORT INFORMATION
  Report Type: 
  Country: None (occurrence: None)
  Receive Date: 20120730
  Receipt Date: 20120720
  Transmission Date: 20120928
  Serious: Yes (Other)
  Sender: FDA-Public Use
  Company Number: US-JNJFOC-20120711066

PATIENT
  Sex: Female

DRUGS (1)
  1. RISPERDAL [Suspect]
     Indication: BIPOLAR DISORDER
     Route: 048
     Dates: start: 20060101, end: 20100101

REACTIONS (6)
  - ABNORMAL LOSS OF WEIGHT [None]
  - DENTAL CARIES [None]
  - SKIN STRIAE [None]
  - WEIGHT INCREASED [None]
  - POOR DENTAL CONDITION [None]
  - SKIN ATROPHY [None]
